FAERS Safety Report 7827359-7 (Version None)
Quarter: 2011Q4

REPORT INFORMATION
  Report Type: 
  Country: None (occurrence: None)
  Receive Date: 20111020
  Receipt Date: 20111020
  Transmission Date: 20120403
  Serious: Yes (Death, Other)
  Sender: FDA-Public Use
  Company Number: ES-PFIZER INC-2011047085

PATIENT
  Age: 51 Year
  Sex: Male

DRUGS (5)
  1. PIPERACILLIN AND TAZOBACTAM [Suspect]
     Indication: PNEUMONIA
     Dosage: 4 G, 4X/DAY
     Route: 042
     Dates: start: 20100819, end: 20100827
  2. METAMIZOLE [Concomitant]
     Indication: PAIN
     Dosage: 2 G, 4X/DAY
     Route: 042
     Dates: start: 20100825, end: 20100903
  3. ACETAMINOPHEN [Suspect]
     Indication: PAIN
     Dosage: 1 G, 3X/DAY
     Route: 042
     Dates: start: 20100819, end: 20100902
  4. METHYLPREDNISOLONE [Concomitant]
     Indication: CHRONIC OBSTRUCTIVE PULMONARY DISEASE
     Dosage: 40 MG, 2X/DAY
     Dates: start: 20070101, end: 20100903
  5. METOCLOPRAMIDE [Concomitant]
     Indication: NAUSEA
     Dosage: UNK
     Route: 042
     Dates: start: 20100819, end: 20100831

REACTIONS (2)
  - SEPSIS [None]
  - HEPATITIS [None]
